FAERS Safety Report 24361363 (Version 1)
Quarter: 2024Q3

REPORT INFORMATION
  Report Type: Spontaneous
  Country: CA (occurrence: CA)
  Receive Date: 20240925
  Receipt Date: 20240925
  Transmission Date: 20241017
  Serious: Yes (Other)
  Sender: ROCHE
  Company Number: CA-002147023-NVSC2024CA187419

PATIENT
  Age: 33 Year
  Sex: Male

DRUGS (1)
  1. OMALIZUMAB [Suspect]
     Active Substance: OMALIZUMAB
     Indication: Chronic spontaneous urticaria
     Dosage: UNK (INJECTION)
     Route: 065
     Dates: start: 202105

REACTIONS (5)
  - Urticaria [Unknown]
  - Angioedema [Unknown]
  - Swelling [Unknown]
  - Pruritus [Unknown]
  - Therapeutic product effect incomplete [Unknown]
